FAERS Safety Report 15843543 (Version 1)
Quarter: 2019Q1

REPORT INFORMATION
  Report Type: Spontaneous
  Country: US (occurrence: US)
  Receive Date: 20190118
  Receipt Date: 20190118
  Transmission Date: 20190417
  Serious: Yes (Hospitalization, Disabling)
  Sender: FDA-Public Use
  Company Number: US-JNJFOC-20190120338

PATIENT
  Age: 66 Year
  Sex: Male

DRUGS (1)
  1. INVOKANA [Suspect]
     Active Substance: CANAGLIFLOZIN
     Indication: TYPE 2 DIABETES MELLITUS
     Route: 048
     Dates: start: 20160505

REACTIONS (4)
  - Impaired healing [Unknown]
  - Cellulitis [Unknown]
  - Osteomyelitis [Unknown]
  - Limb amputation [Unknown]

NARRATIVE: CASE EVENT DATE: 20170213
